FAERS Safety Report 4757712-X (Version None)
Quarter: 2005Q3

REPORT INFORMATION
  Report Type: 
  Country: None (occurrence: None)
  Receive Date: 20050830
  Receipt Date: 20050817
  Transmission Date: 20060218
  Serious: Yes (Death)
  Sender: FDA-Public Use
  Company Number: 2005117644

PATIENT
  Age: 6 Year
  Sex: Female

DRUGS (4)
  1. HALCION [Suspect]
     Indication: ILL-DEFINED DISORDER
  2. NITRAZEPAM [Suspect]
     Indication: ILL-DEFINED DISORDER
  3. SILECE (FLUNITRAZEPAM) [Suspect]
     Indication: ILL-DEFINED DISORDER
  4. DEPAS (ETIZOLAM) [Suspect]
     Indication: ILL-DEFINED DISORDER

REACTIONS (1)
  - MURDER [None]
